FAERS Safety Report 19834623 (Version 1)
Quarter: 2021Q3

REPORT INFORMATION
  Report Type: Spontaneous
  Country: GB (occurrence: GB)
  Receive Date: 20210914
  Receipt Date: 20210914
  Transmission Date: 20211014
  Serious: Yes (Life-Threatening, Hospitalization, Other)
  Sender: FDA-Public Use
  Company Number: GB-MYLANLABS-2021M1061403

PATIENT
  Age: 41 Year
  Sex: Male

DRUGS (1)
  1. TRAMADOL. [Suspect]
     Active Substance: TRAMADOL
     Indication: BACK PAIN
     Dosage: UNK

REACTIONS (10)
  - Ileal perforation [Recovered/Resolved]
  - Pyrexia [Recovered/Resolved]
  - Constipation [Recovered/Resolved]
  - White blood cell count increased [Recovered/Resolved]
  - Abdominal pain [Recovered/Resolved]
  - Small intestinal obstruction [Recovered/Resolved]
  - Intestinal dilatation [Recovered/Resolved]
  - Nausea [Recovered/Resolved]
  - Encapsulating peritoneal sclerosis [Recovered/Resolved]
  - Vomiting [Recovered/Resolved]
